FAERS Safety Report 13604825 (Version 1)
Quarter: 2017Q2

REPORT INFORMATION
  Report Type: Spontaneous
  Country: US (occurrence: US)
  Receive Date: 20170601
  Receipt Date: 20170601
  Transmission Date: 20170830
  Serious: No
  Sender: FDA-Public Use
  Company Number: None

PATIENT
  Sex: Female

DRUGS (1)
  1. HUMIRA [Suspect]
     Active Substance: ADALIMUMAB
     Indication: CROHN^S DISEASE
     Route: 058
     Dates: start: 20160818

REACTIONS (7)
  - Fatigue [None]
  - Vision blurred [None]
  - Paraesthesia [None]
  - Joint swelling [None]
  - Headache [None]
  - Nasal congestion [None]
  - Hypertension [None]
